FAERS Safety Report 13881330 (Version 1)
Quarter: 2017Q3

REPORT INFORMATION
  Report Type: Spontaneous
  Country: US (occurrence: US)
  Receive Date: 20170818
  Receipt Date: 20170818
  Transmission Date: 20171127
  Serious: No
  Sender: FDA-Public Use
  Company Number: US-ENDO PHARMACEUTICALS INC-2017-001661

PATIENT
  Sex: Female
  Weight: 68.93 kg

DRUGS (3)
  1. SUDAFED 12 HOUR [Concomitant]
     Active Substance: PSEUDOEPHEDRINE HYDROCHLORIDE
     Indication: HYPERSENSITIVITY
     Dosage: UNK UNKNOWN, PRN
     Route: 065
  2. ALLERFEX [Concomitant]
     Indication: HYPERSENSITIVITY
     Dosage: UNK UNKNOWN, PRN
     Route: 065
  3. SUMAVEL DOSEPRO [Suspect]
     Active Substance: SUMATRIPTAN SUCCINATE
     Indication: MIGRAINE
     Dosage: UNK UNKNOWN, PRN
     Route: 065

REACTIONS (5)
  - Injection site discolouration [Recovered/Resolved]
  - Device malfunction [Unknown]
  - Nervousness [Unknown]
  - Fatigue [Recovered/Resolved]
  - Injection site pain [Recovered/Resolved]
